FAERS Safety Report 5713018-3 (Version None)
Quarter: 2008Q2

REPORT INFORMATION
  Report Type: 
  Country: None (occurrence: None)
  Receive Date: 20080418
  Receipt Date: 20080411
  Transmission Date: 20081010
  Serious: Yes (Death, Hospitalization)
  Sender: FDA-Public Use
  Company Number: 062-21880-08020005

PATIENT
  Age: 69 Year
  Sex: Male
  Weight: 108 kg

DRUGS (7)
  1. REVLIMID [Suspect]
     Indication: MYELODYSPLASTIC SYNDROME
     Dosage: 25 MG, DAILY, ORAL; 15 MG, EVERY OTHER DAY, ORAL
     Route: 048
     Dates: start: 20080114, end: 20080121
  2. REVLIMID [Suspect]
     Indication: MYELODYSPLASTIC SYNDROME
     Dosage: 25 MG, DAILY, ORAL; 15 MG, EVERY OTHER DAY, ORAL
     Route: 048
     Dates: start: 20080210, end: 20080213
  3. ANTICOAGULANT (ANTICOAGULANT SODIUM CITRATE) [Concomitant]
  4. RAMIPRIL [Concomitant]
  5. DIGOXIN [Concomitant]
  6. TORASEMID (TORASEMIDE) [Concomitant]
  7. CEFUROXIME (CEFUROXIME) (500 MILLIGRAM) [Concomitant]

REACTIONS (7)
  - BACK PAIN [None]
  - BLOOD BILIRUBIN INCREASED [None]
  - GENERAL PHYSICAL HEALTH DETERIORATION [None]
  - JAUNDICE [None]
  - REFRACTORY ANAEMIA [None]
  - SEPSIS [None]
  - THROMBOCYTOPENIA [None]
